FAERS Safety Report 4749786-7 (Version None)
Quarter: 2005Q3

REPORT INFORMATION
  Report Type: 
  Country: None (occurrence: None)
  Receive Date: 20050818
  Receipt Date: 20050818
  Transmission Date: 20060218
  Serious: Yes (Hospitalization)
  Sender: FDA-Public Use
  Company Number: None

PATIENT
  Age: 66 Year
  Sex: Female
  Weight: 50 kg

DRUGS (2)
  1. TORADOL [Suspect]
     Indication: ANORECTAL DISORDER
     Dosage: 15 MG IV Q 4 H PRN
     Route: 042
     Dates: start: 20050802, end: 20050817
  2. TORADOL [Suspect]
     Indication: SURGERY
     Dosage: 15 MG IV Q 4 H PRN
     Route: 042
     Dates: start: 20050802, end: 20050817

REACTIONS (5)
  - EROSIVE OESOPHAGITIS [None]
  - HAEMATEMESIS [None]
  - HAEMATOCRIT DECREASED [None]
  - HAEMOGLOBIN DECREASED [None]
  - MALLORY-WEISS SYNDROME [None]
